FAERS Safety Report 10170666 (Version 1)
Quarter: 2014Q2

REPORT INFORMATION
  Report Type: Report from Study
  Country: CA (occurrence: CA)
  Receive Date: 20140514
  Receipt Date: 20140514
  Transmission Date: 20141212
  Serious: Yes (Other)
  Sender: FDA-Public Use
  Company Number: CA-ROCHE-1399350

PATIENT
  Sex: 0

DRUGS (6)
  1. RIBAVIRIN [Suspect]
     Indication: HEPATITIS C
     Dosage: IF BODY WEIGHT WAS { 75 KG
     Route: 048
  2. RIBAVIRIN [Suspect]
     Dosage: IF BODY WEIGHT WAS }= 75 KG
     Route: 048
  3. ABT-450 [Suspect]
     Indication: HEPATITIS C
     Route: 048
  4. RITONAVIR [Suspect]
     Indication: HEPATITIS C
     Route: 048
  5. ABT-267 [Suspect]
     Indication: HEPATITIS C
     Route: 048
  6. ABT-333 [Suspect]
     Indication: HEPATITIS C
     Route: 048

REACTIONS (29)
  - Alanine aminotransferase abnormal [Unknown]
  - Aspartate aminotransferase abnormal [Unknown]
  - Blood bilirubin abnormal [Unknown]
  - Appendicitis [Unknown]
  - Lobar pneumonia [Unknown]
  - Cholecystitis [Unknown]
  - Aortic stenosis [Unknown]
  - Postoperative wound infection [Unknown]
  - Overdose [Unknown]
  - Encephalopathy [Unknown]
  - Mediastinal mass [Unknown]
  - Non-small cell lung cancer [Unknown]
  - Acute respiratory failure [Unknown]
  - Hypoxia [Unknown]
  - Abdominal pain [Unknown]
  - Sinus tachycardia [Unknown]
  - Diarrhoea [Unknown]
  - Chills [Unknown]
  - Vomiting [Unknown]
  - Nausea [Unknown]
  - Ventricular extrasystoles [Unknown]
  - Anaemia [Unknown]
  - Non-cardiac chest pain [Unknown]
  - Fatigue [Unknown]
  - Headache [Unknown]
  - Pruritus [Unknown]
  - Insomnia [Unknown]
  - Rash [Unknown]
  - Syncope [Unknown]
